FAERS Safety Report 7875031-X (Version None)
Quarter: 2011Q4

REPORT INFORMATION
  Report Type: 
  Country: None (occurrence: None)
  Receive Date: 20111031
  Receipt Date: 20111019
  Transmission Date: 20120403
  Serious: Yes (Hospitalization)
  Sender: FDA-Public Use
  Company Number: TW-CELGENEUS-153-C5013-11021116

PATIENT
  Sex: Female
  Weight: 63 kg

DRUGS (17)
  1. DEXAMETHASONE [Suspect]
     Indication: MULTIPLE MYELOMA
     Dosage: 20 MILLIGRAM
     Route: 065
     Dates: start: 20101213
  2. INDOMETHACIN CREAM [Concomitant]
     Indication: BONE PAIN
     Dosage: 2 DOSAGE FORMS
     Route: 061
     Dates: start: 20110214
  3. LENALIDOMIDE [Suspect]
     Indication: MULTIPLE MYELOMA
     Dosage: 10 MILLIGRAM
     Route: 048
     Dates: start: 20101213
  4. LACTULOSE LIQUID [Concomitant]
     Indication: CONSTIPATION
     Dosage: 30 MILLILITER
     Route: 048
     Dates: start: 20101231, end: 20110114
  5. SODIUM CHLORIDE 0.9% [Concomitant]
     Indication: DRUG THERAPY
     Dosage: 100 MILLILITER
     Route: 041
     Dates: start: 20101231, end: 20101231
  6. MAGEST ORAL SUSPENSION [Concomitant]
     Dosage: 6 MILLILITER
     Route: 048
     Dates: start: 20101231, end: 20110114
  7. SODIUM CHLORIDE 0.9% [Concomitant]
     Route: 041
     Dates: start: 20110128, end: 20110128
  8. ZOMETA [Concomitant]
     Indication: BONE PAIN
     Dosage: 4 MILLIGRAM
     Route: 041
     Dates: start: 20101231
  9. LENALIDOMIDE [Suspect]
     Dosage: 10 MILLIGRAM
     Route: 048
     Dates: start: 20110204, end: 20110211
  10. DURAGESIC-100 [Concomitant]
     Indication: BONE PAIN
     Route: 062
     Dates: start: 20110114
  11. SOLU-CORTEF [Concomitant]
     Indication: PROPHYLAXIS
     Dosage: 100 MILLILITER
     Route: 041
     Dates: start: 20110128, end: 20110128
  12. PROMETIN [Concomitant]
     Dosage: 15 MILLIGRAM
     Route: 048
     Dates: start: 20101231, end: 20101231
  13. VENAN [Concomitant]
     Indication: TRANSFUSION
     Route: 041
     Dates: start: 20110128, end: 20110128
  14. DEXAMETHASONE [Suspect]
     Dosage: 20 MILLIGRAM
     Route: 065
     Dates: start: 20110114, end: 20110204
  15. NORVASC [Concomitant]
     Indication: HYPERTENSION
     Route: 048
     Dates: start: 20110114
  16. VENAN [Concomitant]
     Route: 041
  17. CIPROFLOXACIN [Concomitant]
     Indication: INFECTION
     Route: 065

REACTIONS (3)
  - BONE PAIN [None]
  - PARKINSONISM [None]
  - MULTIPLE MYELOMA [None]
